APPROVED DRUG PRODUCT: TRAMADOL HYDROCHLORIDE AND ACETAMINOPHEN
Active Ingredient: ACETAMINOPHEN; TRAMADOL HYDROCHLORIDE
Strength: 325MG;37.5MG
Dosage Form/Route: TABLET;ORAL
Application: A076914 | Product #001
Applicant: GRAVITI PHARMACEUTICALS PRIVATE LTD
Approved: Jul 26, 2006 | RLD: No | RS: No | Type: DISCN